FAERS Safety Report 7955290-5 (Version None)
Quarter: 2011Q4

REPORT INFORMATION
  Report Type: 
  Country: None (occurrence: None)
  Receive Date: 20111202
  Receipt Date: 20111121
  Transmission Date: 20120403
  Serious: Yes (Death, Other)
  Sender: FDA-Public Use
  Company Number: US-WATSON-2011-19824

PATIENT
  Sex: Male

DRUGS (3)
  1. PROPOXYPHENE HCL AND ACETAMINOPHEN [Suspect]
     Indication: PRODUCT USED FOR UNKNOWN INDICATION
     Dosage: UNK
     Route: 065
  2. DARVON [Suspect]
     Indication: PRODUCT USED FOR UNKNOWN INDICATION
     Dosage: UNK
     Route: 065
  3. DARVOCET [Suspect]
     Indication: PRODUCT USED FOR UNKNOWN INDICATION
     Dosage: UNK
     Route: 065

REACTIONS (6)
  - CARDIO-RESPIRATORY ARREST [None]
  - ARRHYTHMIA [None]
  - CARDIOVASCULAR DISORDER [None]
  - SUDDEN CARDIAC DEATH [None]
  - MYOCARDIAL INFARCTION [None]
  - CARDIAC DISORDER [None]
